FAERS Safety Report 9424674 (Version 1)
Quarter: 2013Q3

REPORT INFORMATION
  Report Type: Spontaneous
  Country: BR (occurrence: None)
  Receive Date: 20130725
  Receipt Date: 20130725
  Transmission Date: 20140515
  Serious: Yes (Death)
  Sender: FDA-Public Use
  Company Number: ENTC2013-0260

PATIENT
  Age: 72 Year
  Sex: Male

DRUGS (1)
  1. STALEVO (LEVODOPA, CARSIDOPA, ENTACAPONZI [Suspect]
     Indication: PARKINSON^S DISEASE

REACTIONS (1)
  - Multi-organ failure [None]
